FAERS Safety Report 5809864-8 (Version None)
Quarter: 2008Q3

REPORT INFORMATION
  Report Type: 
  Country: None (occurrence: None)
  Receive Date: 20080715
  Receipt Date: 20080707
  Transmission Date: 20090109
  Serious: Yes (Other)
  Sender: FDA-Public Use
  Company Number: GB-AMGEN-US278859

PATIENT
  Sex: Female

DRUGS (8)
  1. ENBREL [Suspect]
     Indication: ANKYLOSING SPONDYLITIS
     Route: 058
     Dates: start: 20051001, end: 20080404
  2. FOLIC ACID [Concomitant]
     Indication: ANKYLOSING SPONDYLITIS
     Route: 048
     Dates: start: 20070609
  3. ACETAMINOPHEN W/ CODEINE [Concomitant]
     Indication: ANKYLOSING SPONDYLITIS
     Dosage: 2 DOSE EVERY 1 PRN
     Route: 065
     Dates: start: 20000101
  4. CELEBREX [Concomitant]
     Indication: ANKYLOSING SPONDYLITIS
     Route: 048
     Dates: start: 20020101
  5. ACETAMINOPHEN [Concomitant]
     Indication: ANKYLOSING SPONDYLITIS
     Dosage: 2 DOSE EVERY 1 PRN
     Route: 065
     Dates: start: 20000101
  6. METHOTREXATE [Concomitant]
     Indication: ANKYLOSING SPONDYLITIS
     Route: 048
     Dates: start: 20070606
  7. AMITRIPTYLINE HCL [Concomitant]
     Indication: INSOMNIA
     Route: 048
     Dates: start: 20020101
  8. AMITRIPTYLINE HCL [Concomitant]
     Indication: ANKYLOSING SPONDYLITIS

REACTIONS (7)
  - ECZEMA [None]
  - LOCAL SWELLING [None]
  - MUSCLE TIGHTNESS [None]
  - PRURITUS [None]
  - SKIN PLAQUE [None]
  - SWELLING FACE [None]
  - URTICARIA [None]
